FAERS Safety Report 23864132 (Version 3)
Quarter: 2024Q3

REPORT INFORMATION
  Report Type: Spontaneous
  Country: US (occurrence: US)
  Receive Date: 20240516
  Receipt Date: 20240828
  Transmission Date: 20241016
  Serious: Yes (Other)
  Sender: AVADEL CNS PHARMA
  Company Number: US-AVADEL CNS PHARMACEUTICALS, LLC-2024AVA00725

PATIENT
  Age: 42 Year
  Sex: Female
  Weight: 83.5 kg

DRUGS (20)
  1. LUMRYZ [Suspect]
     Active Substance: SODIUM OXYBATE
     Indication: Narcolepsy
     Dosage: UNK AT BEDTIME
     Route: 048
     Dates: start: 20240404, end: 202404
  2. LUMRYZ [Suspect]
     Active Substance: SODIUM OXYBATE
     Indication: Narcolepsy
     Dosage: 7.5 G, ONCE NIGHTLY AT BEDTIME
     Route: 048
     Dates: start: 202404, end: 202404
  3. LUMRYZ [Suspect]
     Active Substance: SODIUM OXYBATE
     Dosage: 7.5 G, ONCE NIGHTLY AT BEDTIME
     Route: 048
     Dates: start: 202404, end: 20240422
  4. SEROQUEL [Suspect]
     Active Substance: QUETIAPINE FUMARATE
     Dosage: UNK
     Dates: end: 2024
  5. SEROQUEL [Suspect]
     Active Substance: QUETIAPINE FUMARATE
     Dosage: RESTARTED SLOWLY OVER A WEEK
     Dates: start: 2024
  6. MORPHINE [Suspect]
     Active Substance: MORPHINE
     Dosage: UNK
  7. CYCLOBENZAPRINE [Concomitant]
     Active Substance: CYCLOBENZAPRINE
  8. BUSPIRONE [Concomitant]
     Active Substance: BUSPIRONE HYDROCHLORIDE
  9. FERROUS SULFATE [Concomitant]
     Active Substance: FERROUS SULFATE
  10. BUPROPION [Concomitant]
     Active Substance: BUPROPION
  11. CITALOPRAM [Concomitant]
     Active Substance: CITALOPRAM\CITALOPRAM HYDROBROMIDE
  12. ASCORBIC ACID [Concomitant]
     Active Substance: ASCORBIC ACID
  13. FLUTICASONE [Concomitant]
     Active Substance: FLUTICASONE
  14. LORATADINE [Concomitant]
     Active Substance: LORATADINE
  15. VITAMIN D NOS [Concomitant]
     Active Substance: CHOLECALCIFEROL\ERGOCALCIFEROL
  16. CHROMIUM [Concomitant]
     Active Substance: CHROMIC CHLORIDE\CHROMIUM
  17. CINNAMON\HERBALS [Concomitant]
     Active Substance: CINNAMON\HERBALS
  18. MAGNESIUM [Concomitant]
     Active Substance: MAGNESIUM
  19. ZINC [Concomitant]
     Active Substance: ZINC
  20. CANNABIS SATIVA SUBSP. INDICA TOP [Concomitant]
     Active Substance: CANNABIS SATIVA SUBSP. INDICA TOP

REACTIONS (9)
  - Consciousness fluctuating [Recovering/Resolving]
  - Serotonin syndrome [Unknown]
  - Pyrexia [Recovering/Resolving]
  - Gait inability [Recovering/Resolving]
  - Retching [Recovering/Resolving]
  - Drug withdrawal syndrome [Unknown]
  - Dizziness [Recovering/Resolving]
  - Vomiting [Unknown]
  - Nausea [Unknown]

NARRATIVE: CASE EVENT DATE: 20240401
